FAERS Safety Report 8094966 (Version 2)
Quarter: 2013Q1

REPORT INFORMATION
  Report Type: Spontaneous
  Country: US (occurrence: US)
  Receive Date: 20110817
  Receipt Date: 20130213
  Transmission Date: 20140127
  Serious: Yes (Hospitalization)
  Sender: FDA-Public Use
  Company Number: US-ASTRAZENECA-2010SE16567

PATIENT
  Age: 31 Year
  Sex: Female
  Weight: 56.7 kg

DRUGS (9)
  1. SEROQUEL [Suspect]
     Indication: BIPOLAR DISORDER
     Route: 048
  2. SEROQUEL [Suspect]
     Indication: BIPOLAR DISORDER
     Route: 048
     Dates: start: 2005
  3. SEROQUEL [Suspect]
     Indication: BIPOLAR DISORDER
     Dosage: 25 MG THREE TIMES A DAY AS REQUIRED
     Route: 048
  4. TRAZODONE [Concomitant]
  5. ZOLOFT [Concomitant]
  6. GABAPENTIN [Concomitant]
  7. KEPPRA [Concomitant]
  8. BUSPIRONE [Concomitant]
  9. LITHIUM CARBONATE [Concomitant]

REACTIONS (4)
  - Alcoholism [Recovered/Resolved]
  - Anxiety [Unknown]
  - Intentional drug misuse [Not Recovered/Not Resolved]
  - Laryngitis [Unknown]
